FAERS Safety Report 25797064 (Version 2)
Quarter: 2025Q3

REPORT INFORMATION
  Report Type: Spontaneous
  Country: EU (occurrence: EU)
  Receive Date: 20250912
  Receipt Date: 20250922
  Transmission Date: 20251021
  Serious: Yes (Disabling, Other)
  Sender: BAYER HEALTHCARE PHARMACEUTICALS INC.
  Company Number: EU-BAYER-2025A064916

PATIENT
  Age: 46 Year
  Sex: Female
  Weight: 63 kg

DRUGS (36)
  1. CYPROTERONE ACETATE [Suspect]
     Active Substance: CYPROTERONE ACETATE
     Indication: Acne
     Dosage: 100 MG, QD
     Route: 048
     Dates: start: 20020225, end: 2008
  2. CYPROTERONE ACETATE [Suspect]
     Active Substance: CYPROTERONE ACETATE
     Indication: Hypertrichosis
     Dosage: 50 MG, QD, 15 DAYS PER MONTH (FROM THE 1ST TO THE 10TH DAYS OF THE MONTH
     Route: 048
     Dates: start: 2012
  3. CYPROTERONE ACETATE [Suspect]
     Active Substance: CYPROTERONE ACETATE
     Indication: Acne
     Dosage: 25 MG, QD, FIRST DAY OF EACH MONTH
     Route: 048
     Dates: start: 2014, end: 2017
  4. CYPROTERONE ACETATE [Suspect]
     Active Substance: CYPROTERONE ACETATE
     Indication: Acne
  5. CYPROTERONE ACETATE [Suspect]
     Active Substance: CYPROTERONE ACETATE
     Route: 048
     Dates: start: 20171010
  6. DROSPIRENONE\ETHINYL ESTRADIOL [Suspect]
     Active Substance: DROSPIRENONE\ETHINYL ESTRADIOL
     Route: 048
     Dates: start: 200409
  7. LOVENOX [Concomitant]
     Active Substance: ENOXAPARIN SODIUM
  8. KEPPRA [Concomitant]
     Active Substance: LEVETIRACETAM
  9. ESTRADIOL [Concomitant]
     Active Substance: ESTRADIOL
  10. BENZOYL PEROXIDE [Concomitant]
     Active Substance: BENZOYL PEROXIDE
  11. LEVOTHYROXINE [Concomitant]
     Active Substance: LEVOTHYROXINE
  12. LEVOCETIRIZINE DIHYDROCHLORIDE [Concomitant]
     Active Substance: LEVOCETIRIZINE DIHYDROCHLORIDE
  13. ALVESCO [Concomitant]
     Active Substance: CICLESONIDE
  14. POLYETHYLENE GLYCOL 4000 [Concomitant]
     Active Substance: POLYETHYLENE GLYCOL 4000
  15. Alprazolam ab [Concomitant]
     Dates: start: 2024
  16. PAROXETINE [Concomitant]
     Active Substance: PAROXETINE
     Dates: start: 2024
  17. LORMETAZEPAM [Concomitant]
     Active Substance: LORMETAZEPAM
     Dates: start: 2024
  18. EUTHYROX [Concomitant]
     Active Substance: LEVOTHYROXINE SODIUM
     Route: 048
     Dates: start: 20171010
  19. TRIMEBUTINE MALEATE [Concomitant]
     Active Substance: TRIMEBUTINE MALEATE
  20. Spasfon [Concomitant]
  21. IMODIUM [Concomitant]
     Active Substance: LOPERAMIDE HYDROCHLORIDE
  22. ESOMEPRAZOLE [Concomitant]
     Active Substance: ESOMEPRAZOLE
  23. ALUMINUM HYDROXIDE\MAGNESIUM HYDROXIDE [Concomitant]
     Active Substance: ALUMINUM HYDROXIDE\MAGNESIUM HYDROXIDE
  24. RABEPRAZOLE SODIUM [Concomitant]
     Active Substance: RABEPRAZOLE SODIUM
  25. Meteospasmyl [Concomitant]
  26. Laxamalt [Concomitant]
  27. ANTALVIC [Concomitant]
     Active Substance: PROPOXYPHENE HYDROCHLORIDE
  28. TITANOREINE [Concomitant]
     Active Substance: CARRAGEENAN\TITANIUM\ZINC
  29. Effacne [Concomitant]
  30. DOXYCYCLINE [Concomitant]
     Active Substance: DOXYCYCLINE
  31. Erythrogel [Concomitant]
  32. DOMPERIDONE [Concomitant]
     Active Substance: DOMPERIDONE
  33. ASCORBIC ACID\FERROUS SULFATE [Concomitant]
     Active Substance: ASCORBIC ACID\FERROUS SULFATE
  34. ACETAMINOPHEN\CODEINE PHOSPHATE [Concomitant]
     Active Substance: ACETAMINOPHEN\CODEINE PHOSPHATE
  35. SMECTA [Concomitant]
     Active Substance: MONTMORILLONITE
  36. TRETINOIN [Concomitant]
     Active Substance: TRETINOIN

REACTIONS (55)
  - Meningioma [Recovered/Resolved]
  - Retinal pigment epitheliopathy [None]
  - Intraosseous meningioma [None]
  - Endometriosis [None]
  - Varicose veins pelvic [None]
  - Brain oedema [None]
  - Cognitive disorder [Not Recovered/Not Resolved]
  - Headache [Not Recovered/Not Resolved]
  - Dizziness [None]
  - Fall [None]
  - Visual impairment [Not Recovered/Not Resolved]
  - Optic nerve disorder [None]
  - Contusion [None]
  - Speech disorder [None]
  - Abnormal behaviour [Recovering/Resolving]
  - Memory impairment [Not Recovered/Not Resolved]
  - Disturbance in attention [Not Recovered/Not Resolved]
  - Mental disorder [None]
  - Post procedural complication [None]
  - Nausea [None]
  - Lipoma [None]
  - Umbilical hernia repair [None]
  - Post procedural haemorrhage [None]
  - Disturbance in attention [None]
  - Aphasia [None]
  - Impaired work ability [None]
  - Inguinal hernia repair [None]
  - Adjustment disorder with depressed mood [None]
  - Fall [None]
  - Contusion [None]
  - Pelvic pain [None]
  - Adenomyosis [None]
  - Peripheral venous disease [None]
  - Nasopharyngitis [None]
  - Hypertension [None]
  - Dysuria [None]
  - Dyspareunia [None]
  - Abdominal pain [None]
  - Dyspepsia [None]
  - Diarrhoea [None]
  - Constipation [None]
  - Gastritis [None]
  - Lymphoid hyperplasia of intestine [None]
  - Asthenia [None]
  - Amimia [None]
  - Fatigue [Not Recovered/Not Resolved]
  - Muscular weakness [None]
  - Hemihypoaesthesia [None]
  - Visual field defect [None]
  - Acne [None]
  - Off label use [None]
  - Eyelid ptosis [None]
  - Dyspnoea [None]
  - Dysphagia [None]
  - Diplopia [None]

NARRATIVE: CASE EVENT DATE: 20020101
